FAERS Safety Report 9433047 (Version 1)
Quarter: 2013Q3

REPORT INFORMATION
  Report Type: Spontaneous
  Country: US (occurrence: US)
  Receive Date: 20130731
  Receipt Date: 20130731
  Transmission Date: 20140515
  Serious: No
  Sender: FDA-Public Use
  Company Number: US-TEVA-422406USA

PATIENT
  Sex: 0

DRUGS (1)
  1. QNASL [Suspect]

REACTIONS (2)
  - Headache [Unknown]
  - Ear pain [Unknown]
